FAERS Safety Report 5799362-2 (Version None)
Quarter: 2008Q3

REPORT INFORMATION
  Report Type: 
  Country: None (occurrence: None)
  Receive Date: 20080703
  Receipt Date: 20080623
  Transmission Date: 20090109
  Serious: Yes (Disabling)
  Sender: FDA-Public Use
  Company Number: FR-PFIZER INC-2008053369

PATIENT
  Age: 59 Year
  Sex: Female

DRUGS (11)
  1. VFEND [Suspect]
     Route: 048
     Dates: start: 20080101, end: 20080605
  2. CORTANCYL [Concomitant]
  3. LEDERFOLIN [Concomitant]
  4. TRIMEBUTINE MALEATE [Concomitant]
  5. ZOLPIDEM TARTRATE [Concomitant]
  6. PANTOPRAZOLE SODIUM [Concomitant]
  7. EZETIMIBE/SIMVASTATIN [Concomitant]
  8. ACEBUTOLOL HYDROCHLORIDE [Concomitant]
  9. LASIX [Concomitant]
  10. BACTRIM [Concomitant]
  11. VALACYCLOVIR HCL [Concomitant]

REACTIONS (2)
  - GAIT DISTURBANCE [None]
  - PARAESTHESIA [None]
